FAERS Safety Report 5555177-1 (Version None)
Quarter: 2007Q4

REPORT INFORMATION
  Report Type: 
  Country: None (occurrence: None)
  Receive Date: 20071213
  Receipt Date: 20070810
  Transmission Date: 20080405
  Serious: No
  Sender: FDA-Public Use
  Company Number: US-AMGEN-KDL238346

PATIENT
  Sex: Male

DRUGS (1)
  1. ENBREL [Suspect]
     Indication: RHEUMATOID ARTHRITIS
     Route: 058
     Dates: start: 20030901

REACTIONS (5)
  - BACK DISORDER [None]
  - BACK PAIN [None]
  - GAIT DISTURBANCE [None]
  - LABORATORY TEST ABNORMAL [None]
  - RHEUMATOID ARTHRITIS [None]
